FAERS Safety Report 21306858 (Version 1)
Quarter: 2022Q3

REPORT INFORMATION
  Report Type: Spontaneous
  Country: US (occurrence: US)
  Receive Date: 20220908
  Receipt Date: 20220908
  Transmission Date: 20221027
  Serious: No
  Sender: FDA-Public Use
  Company Number: US-PERRIGO-22US006313

PATIENT
  Age: 38 Year
  Sex: Female
  Weight: 120.18 kg

DRUGS (1)
  1. MINOXIDIL [Suspect]
     Active Substance: MINOXIDIL
     Indication: Alopecia
     Dosage: 1 ML, Q 3 DAYS
     Route: 061
     Dates: start: 20220401, end: 20220424

REACTIONS (9)
  - Application site inflammation [Recovering/Resolving]
  - Alopecia [Not Recovered/Not Resolved]
  - Application site infection [Not Recovered/Not Resolved]
  - Hypersensitivity [Recovering/Resolving]
  - Application site papules [Not Recovered/Not Resolved]
  - Application site irritation [Recovering/Resolving]
  - Application site pain [Recovering/Resolving]
  - Application site pruritus [Recovering/Resolving]
  - Inappropriate schedule of product administration [Recovered/Resolved]

NARRATIVE: CASE EVENT DATE: 20220401
